FAERS Safety Report 8906437 (Version 1)
Quarter: 2012Q4

REPORT INFORMATION
  Report Type: Spontaneous
  Country: US (occurrence: None)
  Receive Date: 20121112
  Receipt Date: 20121112
  Transmission Date: 20130627
  Serious: Yes (Other)
  Sender: FDA-Public Use
  Company Number: None

PATIENT
  Age: 37 Year
  Sex: Female
  Weight: 66 kg

DRUGS (11)
  1. CANAKINUMAB [Suspect]
     Indication: MUCKLE-WELLS SYNDROME
     Dosage: 300mg
  2. METOPROLOL [Concomitant]
  3. NEXIUM [Concomitant]
  4. PROBIOTICS [Concomitant]
  5. CELLCEPT [Concomitant]
  6. PROGRAF [Concomitant]
  7. PREDNISONE [Concomitant]
  8. EPOGEN [Concomitant]
  9. FERROUS SULFATE [Concomitant]
  10. LEXAPRO [Concomitant]
  11. ILARIS [Concomitant]

REACTIONS (4)
  - Palpitations [None]
  - Inflammation [None]
  - Injection site pain [None]
  - Drug dose omission [None]
